FAERS Safety Report 13932601 (Version 1)
Quarter: 2017Q3

REPORT INFORMATION
  Report Type: Spontaneous
  Country: US (occurrence: US)
  Receive Date: 20170904
  Receipt Date: 20170904
  Transmission Date: 20171127
  Serious: No
  Sender: FDA-Public Use
  Company Number: US-009507513-1709USA000169

PATIENT
  Age: 54 Year
  Sex: Female

DRUGS (2)
  1. BENADRYL ALLERGY [Concomitant]
     Active Substance: DIPHENHYDRAMINE HYDROCHLORIDE
     Dosage: UNK
  2. ZEPATIER [Suspect]
     Active Substance: ELBASVIR\GRAZOPREVIR
     Indication: HEPATITIS C
     Dosage: 1 TABLET EVERY DAY; TOTAL DAILY DOSE: 50-100 MG
     Route: 048
     Dates: start: 20170813

REACTIONS (1)
  - Arthropod bite [Unknown]

NARRATIVE: CASE EVENT DATE: 201708
